FAERS Safety Report 4865517-4 (Version None)
Quarter: 2005Q4

REPORT INFORMATION
  Report Type: 
  Country: None (occurrence: None)
  Receive Date: 20051223
  Receipt Date: 20000113
  Transmission Date: 20060501
  Serious: Yes (Life-Threatening, Hospitalization)
  Sender: FDA-Public Use
  Company Number: US-ROCHE-226014

PATIENT
  Age: 19 Year
  Sex: Male

DRUGS (44)
  1. MYCOPHENOLATE MOFETIL [Suspect]
     Route: 065
     Dates: start: 20000224
  2. DACLIZUMAB [Suspect]
     Dosage: X 5 DOSES
     Route: 042
     Dates: start: 20000108, end: 20000113
  3. CYCLOSPORINE [Suspect]
     Route: 065
     Dates: start: 20000108, end: 20000113
  4. PREDNISONE 50MG TAB [Suspect]
     Route: 065
     Dates: start: 20000108, end: 20000112
  5. FK506 [Concomitant]
     Dates: start: 20000303
  6. RANITIDINE [Concomitant]
     Dates: start: 20000113
  7. COLACE [Concomitant]
     Dates: start: 20000108
  8. AMLODIPINE [Concomitant]
  9. MAGNESIUM OXIDE [Concomitant]
  10. CLOTRIMAZOLE TROCHE [Concomitant]
  11. PAXIL [Concomitant]
  12. BACTRIM DS [Concomitant]
  13. LOSARTAN [Concomitant]
  14. FUROSEMIDE [Concomitant]
  15. PRAVASTATIN [Concomitant]
  16. CALCIUM CARBONATE [Concomitant]
  17. MULTIPLE VITAMIN [Concomitant]
     Route: 048
  18. CLEOCIN SOLUTION [Concomitant]
     Route: 061
  19. POTASSIUM [Concomitant]
  20. HCL [Concomitant]
     Dates: start: 20000113
  21. ZANTAC [Concomitant]
  22. REGLAN [Concomitant]
  23. MYCOPHENOLATE [Concomitant]
     Dates: start: 20000108
  24. LOMIR [Concomitant]
     Dates: start: 20000113
  25. GANCICLOVIR [Concomitant]
     Dates: start: 20000111
  26. HEPARIN [Concomitant]
     Dates: start: 20000113, end: 20000113
  27. SUCRALFATE [Concomitant]
     Dates: start: 20000108, end: 20000112
  28. PROPOFOL [Concomitant]
     Route: 042
     Dates: start: 20000114, end: 20000121
  29. INSULIN INFUSION [Concomitant]
     Dosage: SLIDING SCALE
     Route: 042
     Dates: start: 20000107, end: 20000122
  30. ATIVAN [Concomitant]
     Route: 042
     Dates: start: 20000113, end: 20000121
  31. FENTANYL DRIP [Concomitant]
     Route: 042
     Dates: start: 20000114, end: 20000124
  32. VASOPRESSIN [Concomitant]
     Dosage: SLIDING SCALE
     Route: 042
     Dates: start: 20000114, end: 20000125
  33. SOLU-MEDROL [Concomitant]
     Dates: start: 20000114, end: 20000114
  34. CEFUROXIME [Concomitant]
     Dates: start: 20000113, end: 20000127
  35. CSA DRIP [Concomitant]
     Route: 042
     Dates: start: 20000114, end: 20000114
  36. MORPHINE [Concomitant]
     Dates: start: 20000114, end: 20000114
  37. LASIX [Concomitant]
     Dates: start: 20000114, end: 20000114
  38. TYLENOL [Concomitant]
     Dates: start: 20000114, end: 20000125
  39. REGLAN [Concomitant]
     Dates: start: 20000113, end: 20000120
  40. KAYEXALATE [Concomitant]
     Dates: start: 20000113, end: 20000114
  41. ASPIRIN [Concomitant]
     Dates: start: 20000114, end: 20000123
  42. MUD [Concomitant]
     Dates: start: 20000113, end: 20000129
  43. ATGAM [Concomitant]
     Dates: start: 20000114, end: 20000127
  44. BENADRYL [Concomitant]
     Dates: start: 20000114, end: 20000127

REACTIONS (7)
  - CARDIAC ARREST [None]
  - CARDIAC FAILURE CONGESTIVE [None]
  - HAEMORRHAGE [None]
  - MEDIASTINAL HAEMATOMA [None]
  - PLASMAPHERESIS [None]
  - POST PROCEDURAL COMPLICATION [None]
  - RECTAL HAEMORRHAGE [None]
